FAERS Safety Report 10990655 (Version 1)
Quarter: 2015Q2

REPORT INFORMATION
  Report Type: Spontaneous
  Country: JP (occurrence: JP)
  Receive Date: 20150406
  Receipt Date: 20150406
  Transmission Date: 20150821
  Serious: Yes (Hospitalization)
  Sender: FDA-Public Use
  Company Number: JP-DSJP-DSJ-2011-24434

PATIENT

DRUGS (6)
  1. OLMETEC [Suspect]
     Active Substance: OLMESARTAN MEDOXOMIL
     Indication: BLOOD PRESSURE MANAGEMENT
     Dosage: EVERY
     Route: 048
  2. ADALAT [Concomitant]
     Active Substance: NIFEDIPINE
     Dosage: UNKNOWN     EVERY
     Route: 048
  3. PREDNISOLONE. [Concomitant]
     Active Substance: PREDNISOLONE
     Dosage: EVERY
     Route: 048
  4. OLMETEC [Suspect]
     Active Substance: OLMESARTAN MEDOXOMIL
     Indication: NEPHROPROTECTIVE THERAPY
  5. PREDNISOLONE. [Concomitant]
     Active Substance: PREDNISOLONE
     Dosage: EVERY
     Route: 048
  6. PREDNISOLONE. [Concomitant]
     Active Substance: PREDNISOLONE
     Dosage: EVERY
     Route: 048

REACTIONS (7)
  - Pre-eclampsia [Recovered/Resolved]
  - Dizziness [Unknown]
  - Oligohydramnios [Recovered/Resolved]
  - Exposure during pregnancy [Unknown]
  - Hypotension [Unknown]
  - Dizziness [Recovered/Resolved]
  - Cerebral infarction [Unknown]
